FAERS Safety Report 11876773 (Version 1)
Quarter: 2015Q4

REPORT INFORMATION
  Report Type: Report from Study
  Country: BR (occurrence: BR)
  Receive Date: 20151229
  Receipt Date: 20151229
  Transmission Date: 20160305
  Serious: Yes (Hospitalization, Other)
  Sender: FDA-Public Use
  Company Number: BR-PFIZER INC-2015467068

PATIENT
  Age: 52 Year
  Sex: Male
  Weight: 80 kg

DRUGS (8)
  1. BRILINTA [Suspect]
     Active Substance: TICAGRELOR
     Indication: ARTERIAL OCCLUSIVE DISEASE
     Dosage: 90 MG, 2X/DAY
     Route: 048
     Dates: start: 201507
  2. LOSARTAN. [Concomitant]
     Active Substance: LOSARTAN
     Indication: ARTERIAL OCCLUSIVE DISEASE
     Dosage: UNK UNK, DAILY
     Route: 048
     Dates: start: 2004
  3. INSULIN HUMAN [Concomitant]
     Active Substance: INSULIN HUMAN
     Indication: TYPE 2 DIABETES MELLITUS
     Dosage: UNK UNK, DAILY, AT NIGHT
     Route: 058
     Dates: start: 2013
  4. VASTAREL [Concomitant]
     Active Substance: TRIMETAZIDINE DIHYDROCHLORIDE
     Indication: ARTERIAL OCCLUSIVE DISEASE
     Dosage: UNK UNK, DAILY, AT NIGHT
     Route: 048
     Dates: start: 2004
  5. CLOPIDOGREL [Concomitant]
     Active Substance: CLOPIDOGREL BISULFATE
     Indication: ARTERIAL OCCLUSIVE DISEASE
     Dosage: UNK
     Route: 048
     Dates: start: 2003, end: 201507
  6. ATENOLOL. [Suspect]
     Active Substance: ATENOLOL
     Indication: ARTERIAL OCCLUSIVE DISEASE
     Dosage: 25 MG, 2 TABLETS/BY MORNING AND 1 TABLET/AT NIGHT
     Route: 048
     Dates: start: 2004
  7. JANUMET [Suspect]
     Active Substance: METFORMIN HYDROCHLORIDE\SITAGLIPTIN PHOSPHATE
     Indication: TYPE 2 DIABETES MELLITUS
     Dosage: 50/1000 MG, DAILY
     Route: 048
     Dates: start: 2013
  8. MONOCODIL [Concomitant]
     Indication: ARTERIAL OCCLUSIVE DISEASE
     Dosage: 40 MG, 2X/DAY
     Route: 048
     Dates: start: 2004

REACTIONS (2)
  - Coronary artery occlusion [Recovered/Resolved]
  - Dyspepsia [Not Recovered/Not Resolved]

NARRATIVE: CASE EVENT DATE: 2004
